FAERS Safety Report 6538351-7 (Version None)
Quarter: 2010Q1

REPORT INFORMATION
  Report Type: 
  Country: None (occurrence: None)
  Receive Date: 20100111
  Receipt Date: 20091228
  Transmission Date: 20100710
  Serious: Yes (Hospitalization, Disabling)
  Sender: FDA-Public Use
  Company Number: CIP09002614

PATIENT
  Age: 84 Year
  Sex: Female

DRUGS (11)
  1. RISEDRONATE SODIUM [Suspect]
     Indication: OSTEOPOROSIS
     Dosage: 17.5 MG ONCE WEEKLY, ORAL
     Route: 048
     Dates: start: 20080501, end: 20090529
  2. ACTONEL [Suspect]
     Indication: OSTEOPOROSIS
     Dosage: 2.5 MG DAILY, ORAL
     Route: 048
     Dates: start: 20040911, end: 20080501
  3. GASRICK (FAMOTIDINE) [Concomitant]
  4. ALOSENN (ACHILLEA MILLEFOLIUM, RUBIA TINCTORUM ROOT TINCTURE, SENNA AL [Concomitant]
  5. ISOSORBIDE DINITRATE [Concomitant]
  6. NORVASC [Concomitant]
  7. DICHLOTRIDE (HYDROCHLOROTHIAZIDE) [Concomitant]
  8. ANTIBIOTICS [Concomitant]
  9. MUCOSTA (REBAMIPIDE) [Concomitant]
  10. FERROMIA (FERROUS CITRATE) [Concomitant]
  11. HYDROCORTISONE [Concomitant]

REACTIONS (10)
  - CONDITION AGGRAVATED [None]
  - DENTAL CARIES [None]
  - GINGIVAL SWELLING [None]
  - OSTEOMYELITIS [None]
  - PAIN IN JAW [None]
  - PRIMARY SEQUESTRUM [None]
  - PURULENT DISCHARGE [None]
  - RESORPTION BONE INCREASED [None]
  - TOOTH ABSCESS [None]
  - TOOTHACHE [None]
